FAERS Safety Report 8837349 (Version 4)
Quarter: 2012Q4

REPORT INFORMATION
  Report Type: 
  Country: US (occurrence: US)
  Receive Date: 20121012
  Receipt Date: 20121121
  Transmission Date: 20130627
  Serious: Yes (Other)
  Sender: FDA-Public Use
  Company Number: US-PFIZER INC-2012250962

PATIENT
  Age: 52 Year
  Sex: Male
  Weight: 86.17 kg

DRUGS (6)
  1. DEPO-MEDROL [Suspect]
     Indication: CERVICAL RADICULOPATHY
     Dosage: UNK
     Route: 008
     Dates: start: 20120619
  2. DEPO-MEDROL [Suspect]
     Indication: NECK PAIN
  3. DEPO-MEDROL [Suspect]
     Indication: SHOULDER PAIN
  4. MOTRIN [Suspect]
     Indication: PAIN IN EXTREMITY
     Dosage: UNK
     Dates: end: 20120620
  5. MOTRIN [Suspect]
     Indication: SHOULDER PAIN
  6. MOTRIN [Suspect]
     Indication: NECK PAIN

REACTIONS (3)
  - Off label use [Unknown]
  - Meningitis viral [Recovering/Resolving]
  - Cervicobrachial syndrome [Unknown]
